FAERS Safety Report 19448700 (Version 9)
Quarter: 2022Q3

REPORT INFORMATION
  Report Type: Spontaneous
  Country: JP (occurrence: JP)
  Receive Date: 20210622
  Receipt Date: 20220714
  Transmission Date: 20221026
  Serious: Yes (Hospitalization, Disabling, Other)
  Sender: FDA-Public Use
  Company Number: JP-GLAXOSMITHKLINE-JP2021JPN133444

PATIENT

DRUGS (7)
  1. NUCALA [Suspect]
     Active Substance: MEPOLIZUMAB
     Indication: Eosinophilic granulomatosis with polyangiitis
     Dosage: 300 MG, SINGLE
     Route: 058
     Dates: start: 20210511, end: 20210511
  2. NUCALA [Suspect]
     Active Substance: MEPOLIZUMAB
     Dosage: 300 MG, SINGLE
     Route: 058
     Dates: start: 20210608, end: 20210608
  3. NUCALA [Suspect]
     Active Substance: MEPOLIZUMAB
     Dosage: 300 MG
     Route: 058
     Dates: end: 20211025
  4. LANSOPRAZOLE [Concomitant]
     Active Substance: LANSOPRAZOLE
     Dosage: 15 MG
     Route: 048
     Dates: start: 20210427
  5. BACTRAMIN COMBINATION TABLETS [Concomitant]
     Dosage: 1 DF
     Route: 048
     Dates: start: 20210427
  6. EDIROL CAPSULE [Concomitant]
     Dosage: 0.75 ?G
     Route: 048
     Dates: start: 20210501
  7. PREDONINE [Concomitant]
     Active Substance: PREDNISOLONE
     Dosage: 40 MG
     Route: 048
     Dates: start: 20210501

REACTIONS (10)
  - Putamen haemorrhage [Recovered/Resolved with Sequelae]
  - Hemiplegia [Recovered/Resolved with Sequelae]
  - Mental impairment [Recovered/Resolved with Sequelae]
  - Altered state of consciousness [Recovering/Resolving]
  - Dyslalia [Recovering/Resolving]
  - Speech disorder [Recovering/Resolving]
  - Ataxia [Not Recovered/Not Resolved]
  - Loss of personal independence in daily activities [Not Recovered/Not Resolved]
  - Neurologic neglect syndrome [Not Recovered/Not Resolved]
  - Disturbance in attention [Not Recovered/Not Resolved]

NARRATIVE: CASE EVENT DATE: 20210614
